FAERS Safety Report 10432457 (Version 3)
Quarter: 2014Q4

REPORT INFORMATION
  Report Type: Spontaneous
  Country: BR (occurrence: BR)
  Receive Date: 20140905
  Receipt Date: 20141007
  Transmission Date: 20150528
  Serious: Yes (Hospitalization, Other)
  Sender: FDA-Public Use
  Company Number: BR-JNJFOC-20140827074

PATIENT
  Sex: Male
  Weight: 70 kg

DRUGS (1)
  1. HALDOL [Suspect]
     Active Substance: HALOPERIDOL
     Indication: SCHIZOPHRENIA
     Dosage: USED HALOPERIDOL 15 YEARS PRIOR TO THIS REPORT
     Route: 048

REACTIONS (3)
  - Obsessive-compulsive disorder [Recovered/Resolved]
  - Schizophrenia [Unknown]
  - Abnormal behaviour [Recovered/Resolved]

NARRATIVE: CASE EVENT DATE: 2009
